FAERS Safety Report 26011568 (Version 1)
Quarter: 2025Q4

REPORT INFORMATION
  Report Type: Spontaneous
  Country: CA (occurrence: CA)
  Receive Date: 20251107
  Receipt Date: 20251107
  Transmission Date: 20260117
  Serious: Yes (Other)
  Sender: CELLTRION
  Company Number: CA-PFIZER INC-202500214414

PATIENT

DRUGS (1)
  1. INFLECTRA [Suspect]
     Active Substance: INFLIXIMAB-DYYB
     Indication: Crohn^s disease
     Dosage: 350 MG, EVERY 6 WEEKS (5 MG/KG)
     Route: 042
     Dates: start: 20210330

REACTIONS (3)
  - Pyoderma gangrenosum [Unknown]
  - Iritis [Unknown]
  - Eye infection [Unknown]

NARRATIVE: CASE EVENT DATE: 20250501
